FAERS Safety Report 6125174 (Version 2)
Quarter: 2019Q1

REPORT INFORMATION
  Report Type: Spontaneous
  Country: FR (occurrence: FR)
  Receive Date: 20060911
  Receipt Date: 20190204
  Transmission Date: 20190418
  Serious: Yes (Death, Hospitalization, Other)
  Sender: FDA-Public Use
  Company Number: FR-SANOFI-SYNTHELABO-A02200602217

PATIENT
  Age: 19 Month
  Sex: Female
  Weight: 10 kg

DRUGS (15)
  1. FLUDARABINE PHOSPHATE. [Suspect]
     Active Substance: FLUDARABINE PHOSPHATE
     Indication: ACUTE MYELOID LEUKAEMIA
     Dosage: 10 MG,QD
     Route: 042
     Dates: start: 20060525, end: 20060529
  2. PLITICAN [Concomitant]
     Active Substance: ALIZAPRIDE HYDROCHLORIDE
     Dosage: UNK UNK,UNK
     Route: 065
     Dates: start: 20060524
  3. FASTURTEC [Suspect]
     Active Substance: RASBURICASE
     Indication: GOUT
     Dosage: 1.5 MG,QD
     Route: 042
     Dates: start: 20060519, end: 20060519
  4. FASTURTEC [Suspect]
     Active Substance: RASBURICASE
     Dosage: UNK UNK,QD
     Route: 042
     Dates: start: 20060621, end: 20060621
  5. FASTURTEC [Suspect]
     Active Substance: RASBURICASE
     Dosage: UNK UNK,QD
     Route: 042
     Dates: start: 20060625, end: 20060625
  6. LENOGRASTIM [Suspect]
     Active Substance: LENOGRASTIM
     Indication: AGRANULOCYTOSIS
     Dosage: 13 UNK,QD
     Route: 042
     Dates: start: 20060524, end: 20060529
  7. ONDANSETRON [Suspect]
     Active Substance: ONDANSETRON
     Indication: NAUSEA
  8. ARACYTIN [Suspect]
     Active Substance: CYTARABINE
     Dosage: 26 MG,QD
     Route: 042
     Dates: start: 20060524, end: 20060524
  9. ONDANSETRON [Suspect]
     Active Substance: ONDANSETRON
     Indication: VOMITING
     Dosage: 4 MG, QOD
     Route: 048
     Dates: start: 20060523
  10. BACTRIM [Concomitant]
     Active Substance: SULFAMETHOXAZOLE\TRIMETHOPRIM
     Indication: ANTIFUNGAL PROPHYLAXIS
     Dosage: UNK UNK,UNK
     Route: 065
     Dates: start: 20060524
  11. CARDIOXANE [Concomitant]
     Active Substance: DEXRAZOXANE HYDROCHLORIDE
     Dosage: UNK UNK,UNK
     Route: 042
     Dates: start: 200605, end: 200605
  12. FASTURTEC [Suspect]
     Active Substance: RASBURICASE
     Indication: TUMOUR LYSIS SYNDROME
     Dosage: 1.5 MG,QD
     Route: 042
     Dates: start: 20060523, end: 20060523
  13. FASTURTEC [Suspect]
     Active Substance: RASBURICASE
     Dosage: 1.5 MG,QD
     Route: 042
     Dates: start: 20060526, end: 20060526
  14. ARACYTIN [Suspect]
     Active Substance: CYTARABINE
     Indication: ACUTE MYELOID LEUKAEMIA
     Dosage: 26 MG,QD
     Route: 037
     Dates: start: 20060524, end: 20060524
  15. DAUNORUBICIN [Suspect]
     Active Substance: DAUNORUBICIN
     Indication: ACUTE MYELOID LEUKAEMIA
     Dosage: 220 MG/M2,QD (100 MG DAILY)
     Route: 042
     Dates: start: 20060525, end: 20060525

REACTIONS (9)
  - Chills [Fatal]
  - Pain [Fatal]
  - Accidental overdose [Fatal]
  - Fatigue [Fatal]
  - Cardiac failure [Not Recovered/Not Resolved]
  - Product administration error [Fatal]
  - Aplasia [Recovered/Resolved]
  - Respiratory distress [Fatal]
  - Cardiac arrest [Fatal]

NARRATIVE: CASE EVENT DATE: 20060525
